FAERS Safety Report 6245290-8 (Version None)
Quarter: 2009Q2

REPORT INFORMATION
  Report Type: 
  Country: None (occurrence: None)
  Receive Date: 20090623
  Receipt Date: 20090623
  Transmission Date: 20091009
  Serious: Yes (Other)
  Sender: FDA-Public Use
  Company Number: None

PATIENT
  Sex: Male
  Weight: 74.8435 kg

DRUGS (2)
  1. KAPIDEX [Suspect]
     Indication: DYSPEPSIA
     Dosage: 1 CAPSULE DAILY PO
     Route: 048
     Dates: start: 20090528, end: 20090605
  2. KAPIDEX [Suspect]
     Indication: GASTROOESOPHAGEAL REFLUX DISEASE
     Dosage: 1 CAPSULE DAILY PO
     Route: 048
     Dates: start: 20090528, end: 20090605

REACTIONS (1)
  - DRUG ERUPTION [None]
